FAERS Safety Report 15218248 (Version 5)
Quarter: 2020Q4

REPORT INFORMATION
  Report Type: Spontaneous
  Country: DE (occurrence: DE)
  Receive Date: 20180730
  Receipt Date: 20201119
  Transmission Date: 20210113
  Serious: Yes (Hospitalization, Other)
  Sender: FDA-Public Use
  Company Number: DE-BRISTOL-MYERS SQUIBB COMPANY-BMS-2018-069163

PATIENT
  Sex: Female

DRUGS (6)
  1. JAKAVI [RUXOLITINIB PHOSPHATE] [Suspect]
     Active Substance: RUXOLITINIB PHOSPHATE
     Dosage: 5 MILLIGRAM, QD
     Route: 048
  2. JAKAVI [RUXOLITINIB PHOSPHATE] [Suspect]
     Active Substance: RUXOLITINIB PHOSPHATE
     Indication: POLYCYTHAEMIA VERA
     Dosage: 5 MG, BID
     Route: 048
     Dates: start: 2018
  3. TAMOXIFEN [Suspect]
     Active Substance: TAMOXIFEN
     Indication: BREAST CANCER
     Dosage: UNK
     Route: 065
     Dates: start: 2018, end: 201807
  4. APIXABAN [Suspect]
     Active Substance: APIXABAN
     Indication: PRODUCT USED FOR UNKNOWN INDICATION
     Dosage: UNK
     Route: 065
     Dates: start: 2018
  5. JAKAVI [RUXOLITINIB PHOSPHATE] [Suspect]
     Active Substance: RUXOLITINIB PHOSPHATE
     Dosage: 5 MG, QOD (EVERY SECOND DAY IN THE EVENING)
     Route: 048
  6. JAKAVI [RUXOLITINIB PHOSPHATE] [Suspect]
     Active Substance: RUXOLITINIB PHOSPHATE
     Dosage: 10 MILLIGRAM, QD
     Route: 048

REACTIONS (8)
  - Wrong technique in product usage process [Unknown]
  - Breast cancer [Unknown]
  - Back disorder [Unknown]
  - Renal impairment [Not Recovered/Not Resolved]
  - Blood pressure increased [Unknown]
  - Pruritus [Unknown]
  - Hot flush [Unknown]
  - Haemoglobin decreased [Unknown]
